FAERS Safety Report 5587339-1 (Version None)
Quarter: 2008Q1

REPORT INFORMATION
  Report Type: 
  Country: None (occurrence: None)
  Receive Date: 20080110
  Receipt Date: 20080103
  Transmission Date: 20080703
  Serious: Yes (Other)
  Sender: FDA-Public Use
  Company Number: US-ELI_LILLY_AND_COMPANY-US200801000717

PATIENT
  Sex: Female

DRUGS (3)
  1. HUMALOG [Suspect]
     Indication: TYPE 2 DIABETES MELLITUS
     Dosage: 36 U, UNK
  2. LANTUS [Concomitant]
     Dosage: UNK, EACH EVENING
  3. ARIMIDEX [Concomitant]

REACTIONS (10)
  - BLOOD GLUCOSE INCREASED [None]
  - BREAST CANCER [None]
  - DIZZINESS [None]
  - HYPERHIDROSIS [None]
  - LYMPHADENECTOMY [None]
  - LYMPHOEDEMA [None]
  - PHARMACEUTICAL PRODUCT COMPLAINT [None]
  - TREMOR [None]
  - VISION BLURRED [None]
  - WEIGHT INCREASED [None]
